FAERS Safety Report 12037411 (Version 1)
Quarter: 2016Q1

REPORT INFORMATION
  Report Type: Spontaneous
  Country: US (occurrence: None)
  Receive Date: 20160205
  Receipt Date: 20160205
  Transmission Date: 20160526
  Serious: Yes (Disabling)
  Sender: FDA-Public Use
  Company Number: None

PATIENT
  Age: 35 Year
  Sex: Male

DRUGS (1)
  1. HUMIRA [Suspect]
     Active Substance: ADALIMUMAB
     Indication: CROHN^S DISEASE
     Dosage: 40 MG (0.8 ML, EVERY OTHER WEEK, SUBCUTANEOUS
     Dates: start: 201008

REACTIONS (8)
  - Vision blurred [None]
  - Paraesthesia [None]
  - Headache [None]
  - Memory impairment [None]
  - Demyelination [None]
  - Muscular weakness [None]
  - Asthenia [None]
  - Pain [None]
